FAERS Safety Report 16481340 (Version 3)
Quarter: 2019Q3

REPORT INFORMATION
  Report Type: Spontaneous
  Country: CZ (occurrence: CZ)
  Receive Date: 20190627
  Receipt Date: 20190926
  Transmission Date: 20191004
  Serious: Yes (Other)
  Sender: FDA-Public Use
  Company Number: CZ-AUROBINDO-AUR-APL-2019-035065

PATIENT
  Age: 12 Year
  Sex: Male

DRUGS (1)
  1. ARIPIPRAZOLE APOTEX 10 MG [Suspect]
     Active Substance: ARIPIPRAZOLE
     Indication: CRYING
     Dosage: 1 DOSAGE FORM,FIRST WEEK 1/2 OF TABLET EVERY DAY THEN 1/2-0-1/2
     Route: 048

REACTIONS (10)
  - Bradyphrenia [Not Recovered/Not Resolved]
  - Fatigue [Not Recovered/Not Resolved]
  - Apathy [Not Recovered/Not Resolved]
  - Oedema peripheral [Not Recovered/Not Resolved]
  - Epilepsy [Unknown]
  - Indifference [Not Recovered/Not Resolved]
  - Nocturia [Not Recovered/Not Resolved]
  - Hyperhidrosis [Not Recovered/Not Resolved]
  - Decreased appetite [Not Recovered/Not Resolved]
  - Somnolence [Not Recovered/Not Resolved]

NARRATIVE: CASE EVENT DATE: 201904
